FAERS Safety Report 15885326 (Version 1)
Quarter: 2019Q1

REPORT INFORMATION
  Report Type: Spontaneous
  Country: FR (occurrence: FR)
  Receive Date: 20190129
  Receipt Date: 20190129
  Transmission Date: 20190417
  Serious: Yes (Death, Life-Threatening)
  Sender: FDA-Public Use
  Company Number: FR-BAYER-200610259BFR

PATIENT
  Age: 69 Year
  Sex: Male

DRUGS (11)
  1. TIENAM [Suspect]
     Active Substance: CILASTATIN SODIUM\IMIPENEM
     Indication: PNEUMONIA PSEUDOMONAL
     Dosage: UNK
     Route: 042
     Dates: start: 20040624, end: 200407
  2. PANCREATIN [Concomitant]
     Active Substance: PANCRELIPASE
     Indication: UNEVALUABLE EVENT
     Route: 065
  3. HIDROXIZIN [Concomitant]
     Active Substance: HYDROXYZINE HYDROCHLORIDE
     Indication: UNEVALUABLE EVENT
     Route: 065
  4. CIFLOX [Suspect]
     Active Substance: CIPROFLOXACIN
     Indication: PNEUMONIA PSEUDOMONAL
     Dosage: UNK
     Route: 042
     Dates: start: 20040624, end: 200407
  5. ERYTHROMYCIN. [Concomitant]
     Active Substance: ERYTHROMYCIN
     Indication: PNEUMONIA PSEUDOMONAL
     Route: 065
     Dates: start: 20040605, end: 20040624
  6. CIFLOX [Suspect]
     Active Substance: CIPROFLOXACIN
     Indication: PNEUMONIA PSEUDOMONAL
     Dosage: 400 MG, BID
     Route: 042
     Dates: start: 20040726, end: 20040818
  7. DEPAKINE CHRONO [Concomitant]
     Active Substance: VALPROATE SODIUM
     Indication: UNEVALUABLE EVENT
     Route: 065
  8. ARICEPT [Concomitant]
     Active Substance: DONEPEZIL HYDROCHLORIDE
     Indication: UNEVALUABLE EVENT
     Route: 065
  9. ROCEPHINE [Concomitant]
     Active Substance: CEFTRIAXONE SODIUM
     Indication: PNEUMONIA PSEUDOMONAL
     Route: 065
     Dates: start: 20040605, end: 20040624
  10. TIENAM [Suspect]
     Active Substance: CILASTATIN SODIUM\IMIPENEM
     Indication: PNEUMONIA PSEUDOMONAL
     Dosage: 1 G, TID
     Route: 042
     Dates: start: 20040726, end: 20040818
  11. SEROPRAM [CITALOPRAM HYDROBROMIDE] [Concomitant]
     Indication: UNEVALUABLE EVENT
     Route: 065

REACTIONS (3)
  - Dehydration [Fatal]
  - Oliguria [Fatal]
  - Acute kidney injury [Fatal]

NARRATIVE: CASE EVENT DATE: 20040818
